FAERS Safety Report 10187867 (Version 1)
Quarter: 2014Q2

REPORT INFORMATION
  Report Type: Spontaneous
  Country: US (occurrence: US)
  Receive Date: 20140522
  Receipt Date: 20140522
  Transmission Date: 20141212
  Serious: No
  Sender: FDA-Public Use
  Company Number: US-SA-2013SA103701

PATIENT
  Age: 46 Year
  Sex: Male

DRUGS (2)
  1. LANTUS SOLOSTAR [Suspect]
     Indication: TYPE 2 DIABETES MELLITUS
     Dosage: DOSE:1500 A MONTH, TAKEN FROM: 1 YEAR, TAKEN TO: 2-3 WEEKS AGO
     Route: 058
  2. SOLOSTAR [Concomitant]

REACTIONS (1)
  - Pollakiuria [Unknown]
